FAERS Safety Report 4704998-3 (Version None)
Quarter: 2005Q3

REPORT INFORMATION
  Report Type: 
  Country: None (occurrence: None)
  Receive Date: 20050701
  Receipt Date: 20050622
  Transmission Date: 20060218
  Serious: Yes (Hospitalization)
  Sender: FDA-Public Use
  Company Number: US-JNJFOC-20050606380

PATIENT
  Sex: Female

DRUGS (25)
  1. INFLIXIMAB [Suspect]
     Indication: RHEUMATOID ARTHRITIS
     Route: 042
  2. ALLEGRA [Concomitant]
  3. AVAPRO [Concomitant]
  4. OXYCONTIN [Concomitant]
  5. PERCOCET [Concomitant]
  6. PERCOCET [Concomitant]
  7. COREG [Concomitant]
  8. PREDNISONE [Concomitant]
  9. INSULIN [Concomitant]
  10. PREMARIN [Concomitant]
  11. RESTORIL [Concomitant]
  12. PROMETHAZINE [Concomitant]
  13. NEXIUM [Concomitant]
  14. CLONIDINE [Concomitant]
  15. FOLIC ACID [Concomitant]
  16. METHOTREXATE [Concomitant]
  17. CALCIUM GLUCONATE [Concomitant]
  18. MULTI-VITAMIN [Concomitant]
  19. MULTI-VITAMIN [Concomitant]
  20. MULTI-VITAMIN [Concomitant]
  21. MULTI-VITAMIN [Concomitant]
  22. MULTI-VITAMIN [Concomitant]
  23. MULTI-VITAMIN [Concomitant]
  24. MULTI-VITAMIN [Concomitant]
  25. MULTI-VITAMIN [Concomitant]

REACTIONS (3)
  - CHEST PAIN [None]
  - GASTROENTERITIS [None]
  - HIATUS HERNIA [None]
